FAERS Safety Report 7629437-4 (Version None)
Quarter: 2011Q3

REPORT INFORMATION
  Report Type: 
  Country: None (occurrence: None)
  Receive Date: 20110722
  Receipt Date: 20110708
  Transmission Date: 20111222
  Serious: Yes (Other)
  Sender: FDA-Public Use
  Company Number: US-BAYER-2011-059980

PATIENT
  Age: 40 Year
  Sex: Male
  Weight: 75 kg

DRUGS (3)
  1. ALEVE (CAPLET) [Suspect]
     Indication: MUSCLE STRAIN
     Dosage: 2 DF, BID
     Route: 048
     Dates: start: 20110629, end: 20110701
  2. ALEVE (CAPLET) [Suspect]
     Dosage: 2 DF, BID
     Route: 048
     Dates: start: 20110629, end: 20110701
  3. SIMVASTATIN [Concomitant]

REACTIONS (4)
  - SKIN EXFOLIATION [None]
  - GENITAL DISORDER MALE [None]
  - GENITAL INJURY [None]
  - BLISTER [None]
